FAERS Safety Report 5101090-3 (Version None)
Quarter: 2006Q3

REPORT INFORMATION
  Report Type: 
  Country: None (occurrence: None)
  Receive Date: 20060906
  Receipt Date: 20060824
  Transmission Date: 20061208
  Serious: Yes (Hospitalization)
  Sender: FDA-Public Use
  Company Number: 2006096138

PATIENT
  Age: 40 Year
  Sex: Female

DRUGS (2)
  1. LIPITOR [Suspect]
     Indication: HYPERCHOLESTEROLAEMIA
     Dosage: 20 MG (1 IN 1 D), ORAL
     Route: 048
     Dates: start: 20060616, end: 20060710
  2. BEZAFIBRATE [Concomitant]

REACTIONS (6)
  - AUTOIMMUNE HEPATITIS [None]
  - HEPATITIS FULMINANT [None]
  - MALAISE [None]
  - NAUSEA [None]
  - PROTHROMBIN TIME ABNORMAL [None]
  - VOMITING [None]
